APPROVED DRUG PRODUCT: BUTALBITAL, ACETAMINOPHEN AND CAFFEINE
Active Ingredient: ACETAMINOPHEN; BUTALBITAL; CAFFEINE
Strength: 325MG;50MG;40MG
Dosage Form/Route: TABLET;ORAL
Application: A089718 | Product #001
Applicant: HIKMA PHARMACEUTICALS
Approved: Jun 12, 1995 | RLD: No | RS: No | Type: DISCN